FAERS Safety Report 9118227 (Version 3)
Quarter: 2013Q2

REPORT INFORMATION
  Report Type: Spontaneous
  Country: US (occurrence: US)
  Receive Date: 20130128
  Receipt Date: 20130423
  Transmission Date: 20140414
  Serious: No
  Sender: FDA-Public Use
  Company Number: US-PFIZER INC-2013031878

PATIENT
  Sex: Female

DRUGS (3)
  1. EFFEXOR XR [Suspect]
     Indication: DEPRESSION
     Dosage: 75 UGM/ DAY X 7 DAYS
     Dates: start: 201209
  2. EFFEXOR XR [Suspect]
     Dosage: 150 UGM/DAY
     Dates: start: 201210
  3. EFFEXOR XR [Suspect]
     Dosage: 225 UNK/DAY
     Dates: start: 201211

REACTIONS (5)
  - Drug prescribing error [Unknown]
  - Withdrawal syndrome [Unknown]
  - Anxiety [Unknown]
  - Drug ineffective [Unknown]
  - Incorrect dose administered [Unknown]
